FAERS Safety Report 12802339 (Version 1)
Quarter: 2016Q4

REPORT INFORMATION
  Report Type: Spontaneous
  Country: US (occurrence: US)
  Receive Date: 20161003
  Receipt Date: 20161003
  Transmission Date: 20170207
  Serious: No
  Sender: FDA-Public Use
  Company Number: US-JAZZ-2016-US-012182

PATIENT
  Sex: Female

DRUGS (39)
  1. XYREM [Suspect]
     Active Substance: SODIUM OXYBATE
     Indication: NARCOLEPSY
     Dosage: 3 G, BID
     Route: 048
     Dates: start: 201011, end: 201012
  2. CYMBALTA [Concomitant]
     Active Substance: DULOXETINE HYDROCHLORIDE
  3. VITAMIN C [Concomitant]
     Active Substance: ASCORBIC ACID
  4. PAROXETINE HCL [Concomitant]
     Active Substance: PAROXETINE HYDROCHLORIDE
  5. NUVIGIL [Concomitant]
     Active Substance: ARMODAFINIL
  6. RITALIN [Concomitant]
     Active Substance: METHYLPHENIDATE HYDROCHLORIDE
  7. PROBIOTIC ACIDOPHILUS [Concomitant]
     Active Substance: LACTOBACILLUS ACIDOPHILUS
  8. RISPERDAL [Concomitant]
     Active Substance: RISPERIDONE
  9. FISH OIL + VITAMIN D3 [Concomitant]
  10. LAMICTAL [Concomitant]
     Active Substance: LAMOTRIGINE
  11. XYREM [Suspect]
     Active Substance: SODIUM OXYBATE
     Indication: CATAPLEXY
     Dosage: DOSE ADJUSTMENTS
     Route: 048
     Dates: start: 201012, end: 201605
  12. VITAMIN B COMPLEX [Concomitant]
     Active Substance: CYANOCOBALAMIN\DEXPANTHENOL\NIACINAMIDE\PYRIDOXINE HYDROCHLORIDE\RIBOFLAVIN 5^-PHOSPHATE SODIUM\THIAMINE HYDROCHLORIDE\VITAMIN B COMPLEX
  13. CLARITIN-D 12 HOUR [Concomitant]
     Active Substance: LORATADINE\PSEUDOEPHEDRINE SULFATE
  14. BENZTROPINE MESILATE [Concomitant]
     Active Substance: BENZTROPINE MESYLATE
  15. MELATONIN [Concomitant]
     Active Substance: MELATONIN
  16. CLONAZEPAM. [Concomitant]
     Active Substance: CLONAZEPAM
  17. PROZAC [Concomitant]
     Active Substance: FLUOXETINE HYDROCHLORIDE
  18. VITAMIN D3 [Concomitant]
     Active Substance: CHOLECALCIFEROL
  19. INVEGA [Concomitant]
     Active Substance: PALIPERIDONE
  20. WELLBUTRIN XL [Concomitant]
     Active Substance: BUPROPION HYDROCHLORIDE
  21. CENTRUM COMPLETE MULTIVIT [Concomitant]
  22. BAYER ASPIRIN [Concomitant]
     Active Substance: ASPIRIN
  23. ADVIL [Concomitant]
     Active Substance: IBUPROFEN
  24. PRAMIPEXOLE DIHCL [Concomitant]
     Active Substance: PRAMIPEXOLE DIHYDROCHLORIDE
  25. FLUPHENAZINE HCL [Suspect]
     Active Substance: FLUPHENAZINE HYDROCHLORIDE
     Indication: PRODUCT USED FOR UNKNOWN INDICATION
     Dosage: UNK
     Dates: start: 20160301
  26. VITAMIN E [Concomitant]
     Active Substance: .ALPHA.-TOCOPHEROL
  27. ZYRTEC [Concomitant]
     Active Substance: CETIRIZINE HYDROCHLORIDE
  28. ZYPREXA [Concomitant]
     Active Substance: OLANZAPINE
  29. VITAMIN D [Concomitant]
     Active Substance: CHOLECALCIFEROL
  30. MULTIVITAMINS [Concomitant]
     Active Substance: VITAMINS
  31. FLAXSEED [Concomitant]
     Active Substance: FLAX SEED
  32. PRISTIQ EXTENDED-RELEASE [Concomitant]
     Active Substance: DESVENLAFAXINE SUCCINATE
  33. CALCIUM CARBONATE. [Concomitant]
     Active Substance: CALCIUM CARBONATE
  34. HALOPERIDOL. [Concomitant]
     Active Substance: HALOPERIDOL
  35. XYREM [Suspect]
     Active Substance: SODIUM OXYBATE
     Dosage: 4.5 G, BID
     Route: 048
     Dates: start: 201605
  36. TRAZODONE HYDROCHLORIDE. [Concomitant]
     Active Substance: TRAZODONE HYDROCHLORIDE
  37. CENTRUM [Concomitant]
     Active Substance: VITAMINS
  38. ADDERALL XR [Concomitant]
     Active Substance: AMPHETAMINE ASPARTATE\AMPHETAMINE SULFATE\DEXTROAMPHETAMINE SACCHARATE\DEXTROAMPHETAMINE SULFATE
  39. CELEBREX [Concomitant]
     Active Substance: CELECOXIB

REACTIONS (3)
  - Vitamin D deficiency [Recovered/Resolved]
  - Arthralgia [Not Recovered/Not Resolved]
  - Tremor [Not Recovered/Not Resolved]

NARRATIVE: CASE EVENT DATE: 2015
